FAERS Safety Report 5252339-8 (Version None)
Quarter: 2007Q1

REPORT INFORMATION
  Report Type: 
  Country: None (occurrence: None)
  Receive Date: 20070301
  Receipt Date: 20060620
  Transmission Date: 20070707
  Serious: No
  Sender: FDA-Public Use
  Company Number: US-BRISTOL-MYERS SQUIBB COMPANY-13418272

PATIENT
  Age: 51 Year
  Sex: Female
  Weight: 77 kg

DRUGS (7)
  1. TAXOL [Suspect]
     Indication: BREAST CANCER
     Route: 042
     Dates: start: 20060126, end: 20060414
  2. HERCEPTIN [Concomitant]
     Dates: start: 20060126
  3. SERZONE [Concomitant]
     Dates: start: 20060126, end: 20060414
  4. BENADRYL [Concomitant]
     Indication: PREMEDICATION
  5. PREDNISONE [Concomitant]
  6. IRON [Concomitant]
  7. ZANTAC [Concomitant]

REACTIONS (9)
  - ANAEMIA [None]
  - DYSPNOEA [None]
  - EPISTAXIS [None]
  - NAIL DISCOLOURATION [None]
  - ONYCHOCLASIS [None]
  - PRURITUS [None]
  - RASH [None]
  - RECTAL HAEMORRHAGE [None]
  - SWELLING [None]
